FAERS Safety Report 6025131-4 (Version None)
Quarter: 2008Q4

REPORT INFORMATION
  Report Type: 
  Country: None (occurrence: None)
  Receive Date: 20081231
  Receipt Date: 20081226
  Transmission Date: 20090506
  Serious: Yes (Hospitalization)
  Sender: FDA-Public Use
  Company Number: JP-AMGEN-US314617

PATIENT
  Sex: Male
  Weight: 52 kg

DRUGS (3)
  1. ENBREL [Suspect]
     Indication: RHEUMATOID ARTHRITIS
     Dosage: UNSPECIFIED
     Route: 058
     Dates: start: 20061001
  2. OPALMON [Concomitant]
     Dosage: UNSPECIFIED
     Route: 048
  3. VOLTAREN [Concomitant]
     Dosage: UNSPECIFIED
     Route: 048

REACTIONS (1)
  - LEUKOENCEPHALOPATHY [None]
